FAERS Safety Report 5092929-9 (Version None)
Quarter: 2006Q3

REPORT INFORMATION
  Report Type: 
  Country: None (occurrence: None)
  Receive Date: 20060828
  Receipt Date: 20060817
  Transmission Date: 20061208
  Serious: Yes (Hospitalization)
  Sender: FDA-Public Use
  Company Number: 060818-0000769

PATIENT
  Age: 55 Year
  Sex: Female

DRUGS (5)
  1. TRANXENE [Suspect]
     Indication: DRUG USE FOR UNKNOWN INDICATION
     Dosage: 50 MG; QD; PO
     Route: 048
     Dates: start: 19980915, end: 20060610
  2. VENLAFAXINE HCL [Suspect]
     Indication: DRUG USE FOR UNKNOWN INDICATION
     Dosage: 75 MG; PO
     Route: 048
     Dates: end: 20060610
  3. CYAMEMAZINE (CYAMEMAZINE) [Suspect]
     Indication: DRUG USE FOR UNKNOWN INDICATION
     Dosage: 100 MG; QD; PO
     Route: 048
     Dates: start: 19990615, end: 20060610
  4. DEPAKOTE [Suspect]
     Indication: DRUG USE FOR UNKNOWN INDICATION
     Dosage: 2 GM; QD; PO
     Route: 048
     Dates: start: 20060315, end: 20060610
  5. HEPARIN-FRACTION, SODIUM SALT [Concomitant]

REACTIONS (2)
  - ECCHYMOSIS [None]
  - THROMBOCYTOPENIA [None]
